FAERS Safety Report 10352308 (Version 2)
Quarter: 2017Q3

REPORT INFORMATION
  Report Type: Spontaneous
  Country: US (occurrence: US)
  Receive Date: 20140730
  Receipt Date: 20170728
  Transmission Date: 20171127
  Serious: No
  Sender: FDA-Public Use
  Company Number: US-ABBVIE-14P-163-1226728-00

PATIENT
  Sex: Female
  Weight: 64.47 kg

DRUGS (9)
  1. SYNTHROID [Suspect]
     Active Substance: LEVOTHYROXINE SODIUM
     Route: 065
  2. LEVOTHYROXINE. [Suspect]
     Active Substance: LEVOTHYROXINE
     Route: 065
  3. SYNTHROID [Suspect]
     Active Substance: LEVOTHYROXINE SODIUM
     Indication: THYROID DISORDER
     Route: 065
  4. LEVOTHYROXINE. [Suspect]
     Active Substance: LEVOTHYROXINE
     Indication: THYROID DISORDER
     Route: 065
  5. LEVOTHYROXINE. [Suspect]
     Active Substance: LEVOTHYROXINE
     Route: 065
  6. ARMOUR THYROID [Suspect]
     Active Substance: THYROID, PORCINE
     Route: 065
  7. LEVOTHYROXINE. [Suspect]
     Active Substance: LEVOTHYROXINE
     Route: 065
  8. ARMOUR THYROID [Suspect]
     Active Substance: THYROID, PORCINE
     Route: 065
  9. ARMOUR THYROID [Suspect]
     Active Substance: THYROID, PORCINE
     Indication: THYROID DISORDER
     Route: 065

REACTIONS (10)
  - Headache [Recovered/Resolved]
  - Muscular weakness [Recovered/Resolved]
  - Insomnia [Recovered/Resolved]
  - Adverse reaction [Recovered/Resolved]
  - Myalgia [Recovered/Resolved]
  - Blood thyroid stimulating hormone increased [Recovered/Resolved]
  - Abdominal pain upper [Recovered/Resolved]
  - Feeling jittery [Recovered/Resolved]
  - Anxiety [Recovered/Resolved]
  - Middle insomnia [Recovered/Resolved]
